FAERS Safety Report 15553748 (Version 1)
Quarter: 2018Q4

REPORT INFORMATION
  Report Type: Spontaneous
  Country: US (occurrence: US)
  Receive Date: 20181026
  Receipt Date: 20181026
  Transmission Date: 20190205
  Serious: No
  Sender: FDA-Public Use
  Company Number: US-SA-2018SA293427

PATIENT
  Age: 38 Year
  Sex: Male
  Weight: 77.11 kg

DRUGS (3)
  1. FLUOCINONIDE. [Concomitant]
     Active Substance: FLUOCINONIDE
  2. DUPIXENT [Suspect]
     Active Substance: DUPILUMAB
     Dosage: 300 MG, QOW
     Dates: start: 201810
  3. DUPIXENT [Suspect]
     Active Substance: DUPILUMAB
     Indication: DERMATITIS ATOPIC
     Dosage: INJECT 2 SYRINGES (600MG) UNDER SKIN DAY 1
     Route: 058
     Dates: start: 201810, end: 201810

REACTIONS (1)
  - Injection site pain [Unknown]

NARRATIVE: CASE EVENT DATE: 201810
